FAERS Safety Report 18412952 (Version 3)
Quarter: 2024Q1

REPORT INFORMATION
  Report Type: Report from Study
  Country: EG (occurrence: EG)
  Receive Date: 20201021
  Receipt Date: 20240119
  Transmission Date: 20240410
  Serious: Yes (Disabling)
  Sender: FDA-Public Use
  Company Number: None

PATIENT
  Age: 53 Year
  Sex: Male

DRUGS (1)
  1. GLIVEC [Suspect]
     Active Substance: IMATINIB MESYLATE
     Indication: Chronic myeloid leukaemia
     Dosage: 2 DOSAGE FORM, QD (800 MG, QD (9 YERAS AGO))
     Route: 048

REACTIONS (5)
  - Thrombosis [Recovering/Resolving]
  - Speech disorder [Not Recovered/Not Resolved]
  - Movement disorder [Recovering/Resolving]
  - Pain in extremity [Not Recovered/Not Resolved]
  - Gait disturbance [Not Recovered/Not Resolved]

NARRATIVE: CASE EVENT DATE: 20190901
